FAERS Safety Report 16104721 (Version 1)
Quarter: 2019Q1

REPORT INFORMATION
  Report Type: Spontaneous
  Country: US (occurrence: US)
  Receive Date: 20190219
  Receipt Date: 20190219
  Transmission Date: 20190418
  Serious: No
  Sender: FDA-Public Use
  Company Number: None

PATIENT
  Age: 46 Year
  Sex: Female

DRUGS (1)
  1. HIZENTRA [Suspect]
     Active Substance: HUMAN IMMUNOGLOBULIN G
     Indication: CHRONIC INFLAMMATORY DEMYELINATING POLYRADICULONEUROPATHY
     Dosage: ?          OTHER STRENGTH:10/50 G/ML;QUANTITY:800 MG/ML - MILLLIGRAMS PER MILLILITRES;?
     Route: 058

REACTIONS (4)
  - Upper respiratory tract infection [None]
  - Pyrexia [None]
  - Nasopharyngitis [None]
  - Therapy cessation [None]

NARRATIVE: CASE EVENT DATE: 20190219
